FAERS Safety Report 21501298 (Version 2)
Quarter: 2022Q4

REPORT INFORMATION
  Report Type: Spontaneous
  Country: US (occurrence: US)
  Receive Date: 20221025
  Receipt Date: 20221219
  Transmission Date: 20230112
  Serious: Yes (Hospitalization)
  Sender: FDA-Public Use
  Company Number: US-BRISTOL-MYERS SQUIBB COMPANY-2022-125919

PATIENT
  Age: 79 Year
  Sex: Male
  Weight: 68.038 kg

DRUGS (1)
  1. REVLIMID [Suspect]
     Active Substance: LENALIDOMIDE
     Indication: Plasma cell myeloma
     Dosage: FREQUENCY: 3W, 1W OFF (21D ON 7D OFF)
     Route: 048

REACTIONS (2)
  - Hernia [Unknown]
  - Platelet count decreased [Unknown]
